FAERS Safety Report 7035439-1 (Version None)
Quarter: 2010Q4

REPORT INFORMATION
  Report Type: 
  Country: None (occurrence: None)
  Receive Date: 20101008
  Receipt Date: 20100927
  Transmission Date: 20110411
  Serious: Yes (Hospitalization, Other)
  Sender: FDA-Public Use
  Company Number: FR-PFIZER INC-2008044297

PATIENT
  Age: 43 Year
  Sex: Male
  Weight: 108 kg

DRUGS (4)
  1. PEGVISOMANT [Suspect]
     Indication: ACROMEGALY
     Dosage: 80MG
     Dates: start: 20040716
  2. PEGVISOMANT [Suspect]
     Dosage: 10 MG, 1X/DAY
  3. PEGVISOMANT [Suspect]
     Dosage: 30 MG, 1X/DAY
  4. METFORMIN [Concomitant]
     Dosage: UNK
     Dates: start: 20070618

REACTIONS (1)
  - ASTHENIA [None]
